FAERS Safety Report 7656782-9 (Version None)
Quarter: 2011Q3

REPORT INFORMATION
  Report Type: 
  Country: None (occurrence: None)
  Receive Date: 20110804
  Receipt Date: 20110729
  Transmission Date: 20111222
  Serious: Yes (Other)
  Sender: FDA-Public Use
  Company Number: PHHY2011JP57735

PATIENT
  Age: 74 Year
  Sex: Female

DRUGS (4)
  1. OXALIPLATIN [Suspect]
     Indication: METASTASIS
     Dosage: UNK
  2. LEUCOVORIN CALCIUM [Suspect]
     Indication: METASTASIS
     Dosage: UNK
  3. FLUOROURACIL [Suspect]
     Indication: METASTASIS
     Dosage: UNK
  4. BEVACIZUMAB [Suspect]
     Indication: METASTASIS
     Dosage: UNK

REACTIONS (5)
  - DUODENAL ULCER [None]
  - DUODENAL ULCER HAEMORRHAGE [None]
  - GASTRIC ULCER [None]
  - VOMITING [None]
  - NAUSEA [None]
